FAERS Safety Report 12565824 (Version 1)
Quarter: 2016Q3

REPORT INFORMATION
  Report Type: Report from Study
  Country: GB (occurrence: GB)
  Receive Date: 20160718
  Receipt Date: 20160718
  Transmission Date: 20161109
  Serious: Yes (Other)
  Sender: FDA-Public Use
  Company Number: PHFR2016GB005640

PATIENT
  Age: 40 Year
  Sex: Female

DRUGS (1)
  1. GILENYA [Suspect]
     Active Substance: FINGOLIMOD HYDROCHLORIDE
     Indication: RELAPSING-REMITTING MULTIPLE SCLEROSIS
     Dosage: 0.5 MG, UNK
     Route: 065
     Dates: start: 20150105

REACTIONS (15)
  - Tooth abscess [Unknown]
  - Vitamin B12 decreased [Unknown]
  - Dizziness [Unknown]
  - Headache [Unknown]
  - Lymphocyte count decreased [Unknown]
  - Sinus congestion [Unknown]
  - White blood cell count decreased [Unknown]
  - Peroneal nerve palsy [Unknown]
  - Activated partial thromboplastin time prolonged [Unknown]
  - Alanine aminotransferase increased [Unknown]
  - Fall [Unknown]
  - Adjusted calcium decreased [Unknown]
  - Blood bilirubin increased [Unknown]
  - Vomiting [Unknown]
  - Nasopharyngitis [Unknown]

NARRATIVE: CASE EVENT DATE: 20150210
